FAERS Safety Report 9788904 (Version 2)
Quarter: 2014Q1

REPORT INFORMATION
  Report Type: Spontaneous
  Country: HU (occurrence: HU)
  Receive Date: 20131230
  Receipt Date: 20140114
  Transmission Date: 20141002
  Serious: Yes (Hospitalization)
  Sender: FDA-Public Use
  Company Number: HU-GLAXOSMITHKLINE-B0955595A

PATIENT
  Age: 40 Year
  Sex: Female

DRUGS (6)
  1. TYVERB [Suspect]
     Indication: HER-2 POSITIVE BREAST CANCER
     Route: 065
     Dates: start: 201003, end: 201112
  2. XELODA [Suspect]
     Indication: HER-2 POSITIVE BREAST CANCER
     Route: 065
     Dates: start: 201003, end: 201112
  3. TYVERB [Suspect]
     Indication: HER-2 POSITIVE BREAST CANCER
     Route: 065
     Dates: start: 201202, end: 201301
  4. XELODA [Suspect]
     Indication: HER-2 POSITIVE BREAST CANCER
     Route: 065
     Dates: start: 201202, end: 201301
  5. BONDRONAT [Concomitant]
     Dosage: 50MG PER DAY
     Dates: start: 20100220
  6. AROMASIN [Concomitant]
     Dosage: 1TAB PER DAY
     Dates: start: 20090918, end: 20111209

REACTIONS (5)
  - Loss of consciousness [Not Recovered/Not Resolved]
  - Epilepsy [Not Recovered/Not Resolved]
  - Metastases to central nervous system [Not Recovered/Not Resolved]
  - Brain oedema [Unknown]
  - Ovarian cyst [Unknown]
